FAERS Safety Report 15942799 (Version 5)
Quarter: 2019Q1

REPORT INFORMATION
  Report Type: Spontaneous
  Country: DE (occurrence: DE)
  Receive Date: 20190209
  Receipt Date: 20190329
  Transmission Date: 20190417
  Serious: Yes (Other)
  Sender: FDA-Public Use
  Company Number: DE-AMGEN-DEUSP2019013378

PATIENT
  Age: 61 Year
  Sex: Male
  Weight: 75 kg

DRUGS (1)
  1. REPATHA [Suspect]
     Active Substance: EVOLOCUMAB
     Indication: BLOOD CHOLESTEROL INCREASED
     Dosage: 140 MG, Q2WK
     Route: 065
     Dates: start: 201811, end: 201902

REACTIONS (16)
  - Dry mouth [Not Recovered/Not Resolved]
  - Pharyngeal inflammation [Unknown]
  - Stiff tongue [Not Recovered/Not Resolved]
  - Myocardial infarction [Unknown]
  - Headache [Unknown]
  - Pyrexia [Not Recovered/Not Resolved]
  - Back pain [Unknown]
  - Pharyngeal oedema [Unknown]
  - Hyperhidrosis [Unknown]
  - Sleep disorder due to general medical condition, insomnia type [Unknown]
  - Dysgeusia [Not Recovered/Not Resolved]
  - Lip swelling [Not Recovered/Not Resolved]
  - Myalgia [Unknown]
  - Stomatitis [Unknown]
  - Swollen tongue [Unknown]
  - Chest pain [Unknown]

NARRATIVE: CASE EVENT DATE: 201812
